FAERS Safety Report 4514781-X (Version None)
Quarter: 2004Q4

REPORT INFORMATION
  Report Type: 
  Country: None (occurrence: None)
  Receive Date: 20041201
  Receipt Date: 20041119
  Transmission Date: 20050328
  Serious: Yes (Life-Threatening, Hospitalization, Other)
  Sender: FDA-Public Use
  Company Number: GB-JNJFOC-20040907667

PATIENT
  Sex: Male

DRUGS (4)
  1. REOPRO [Suspect]
     Route: 042
  2. REOPRO [Suspect]
     Indication: STENT PLACEMENT
     Route: 042
  3. STEROID INHALER [Concomitant]
     Route: 055
  4. STATINS [Concomitant]

REACTIONS (3)
  - GUILLAIN-BARRE SYNDROME [None]
  - MYOPATHY [None]
  - NEUROPATHY PERIPHERAL [None]
